FAERS Safety Report 9850818 (Version 4)
Quarter: 2014Q2

REPORT INFORMATION
  Report Type: Report from Study
  Country: PR (occurrence: PR)
  Receive Date: 20140128
  Receipt Date: 20140428
  Transmission Date: 20141212
  Serious: Yes (Hospitalization, Other)
  Sender: FDA-Public Use
  Company Number: PR-ABBVIE-14P-131-1189845-00

PATIENT
  Age: 39 Year
  Sex: Male
  Weight: 65.38 kg

DRUGS (3)
  1. HUMIRA [Suspect]
     Indication: CROHN^S DISEASE
     Route: 058
     Dates: start: 201305, end: 201308
  2. HUMIRA [Suspect]
     Route: 058
     Dates: start: 201312, end: 20140215
  3. PREDNISONE [Concomitant]
     Indication: CROHN^S DISEASE
     Dosage: 1.5 TABLETS OF 20 MGS
     Route: 048
     Dates: start: 20131231

REACTIONS (9)
  - Small intestinal obstruction [Recovering/Resolving]
  - Abdominal pain [Not Recovered/Not Resolved]
  - Vomiting [Not Recovered/Not Resolved]
  - Diarrhoea [Not Recovered/Not Resolved]
  - Diarrhoea haemorrhagic [Recovered/Resolved]
  - Small intestinal stenosis [Unknown]
  - Drug ineffective [Unknown]
  - Vomiting [Recovered/Resolved]
  - Diarrhoea [Not Recovered/Not Resolved]
